FAERS Safety Report 6395952-7 (Version None)
Quarter: 2009Q4

REPORT INFORMATION
  Report Type: 
  Country: None (occurrence: None)
  Receive Date: 20091007
  Receipt Date: 20090928
  Transmission Date: 20100525
  Serious: Yes (Other)
  Sender: FDA-Public Use
  Company Number: 2009US003606

PATIENT
  Age: 77 Year
  Sex: Female
  Weight: 73.9 kg

DRUGS (2)
  1. VESICARE [Suspect]
     Indication: HYPERTONIC BLADDER
     Dosage: UNK, UNK, ORAL
     Route: 048
  2. DETROL [Suspect]
     Indication: HYPERTONIC BLADDER
     Dosage: UNK, UNK, UNK

REACTIONS (3)
  - CONDITION AGGRAVATED [None]
  - CYSTOPEXY [None]
  - HYPERTONIC BLADDER [None]
